FAERS Safety Report 4973209-6 (Version None)
Quarter: 2006Q2

REPORT INFORMATION
  Report Type: 
  Country: None (occurrence: None)
  Receive Date: 20060414
  Receipt Date: 20051207
  Transmission Date: 20061013
  Serious: Yes (Hospitalization)
  Sender: FDA-Public Use
  Company Number: US-MERCK-0512USA01392

PATIENT
  Age: 75 Year
  Sex: Female
  Weight: 68 kg

DRUGS (2)
  1. VIOXX [Suspect]
     Indication: ARTHRALGIA
     Route: 048
     Dates: start: 20010101, end: 20020801
  2. VIOXX [Suspect]
     Indication: PAIN IN EXTREMITY
     Route: 048
     Dates: start: 20010101, end: 20020801

REACTIONS (12)
  - ACCELERATED HYPERTENSION [None]
  - AGITATION [None]
  - CARDIOMEGALY [None]
  - CAROTID ARTERY ATHEROMA [None]
  - CEREBROVASCULAR ACCIDENT [None]
  - DEHYDRATION [None]
  - MITRAL VALVE INCOMPETENCE [None]
  - MITRAL VALVE SCLEROSIS [None]
  - OEDEMA [None]
  - PERNICIOUS ANAEMIA [None]
  - VASODILATATION [None]
  - VENTRICULAR HYPERTROPHY [None]
